FAERS Safety Report 12010381 (Version 2)
Quarter: 2016Q1

REPORT INFORMATION
  Report Type: Spontaneous
  Country: US (occurrence: US)
  Receive Date: 20160205
  Receipt Date: 20160212
  Transmission Date: 20160526
  Serious: Yes (Other)
  Sender: FDA-Public Use
  Company Number: US-BAYER-2016-020714

PATIENT
  Age: 49 Year
  Sex: Female
  Weight: 127 kg

DRUGS (4)
  1. ADEMPAS [Suspect]
     Active Substance: RIOCIGUAT
     Indication: PRODUCT USED FOR UNKNOWN INDICATION
  2. LETAIRIS [Suspect]
     Active Substance: AMBRISENTAN
     Indication: PULMONARY ARTERIAL HYPERTENSION
     Dosage: 10 MG, QD
     Route: 065
     Dates: start: 20141001
  3. REVATIO [Concomitant]
     Active Substance: SILDENAFIL CITRATE
  4. TYVASO [Suspect]
     Active Substance: TREPROSTINIL
     Indication: PULMONARY ARTERIAL HYPERTENSION
     Dosage: 18-54 UG
     Route: 055
     Dates: start: 20150721

REACTIONS (9)
  - Cough [Unknown]
  - Dizziness [None]
  - Heart rate increased [None]
  - Throat irritation [Unknown]
  - Productive cough [Unknown]
  - Rhinorrhoea [Unknown]
  - Pulmonary arterial pressure increased [Unknown]
  - Uterine leiomyoma [None]
  - Chest pain [None]

NARRATIVE: CASE EVENT DATE: 2015
